FAERS Safety Report 9687210 (Version 1)
Quarter: 2013Q4

REPORT INFORMATION
  Report Type: Spontaneous
  Country: BR (occurrence: BR)
  Receive Date: 20131113
  Receipt Date: 20131113
  Transmission Date: 20140711
  Serious: Yes (Other)
  Sender: FDA-Public Use
  Company Number: BR-AMGEN-BRASP2013079929

PATIENT
  Age: 55 Year
  Sex: Female
  Weight: 60 kg

DRUGS (3)
  1. ENBREL [Suspect]
     Indication: RHEUMATOID ARTHRITIS
     Dosage: 50 MG, EVERY 15 DAYS
     Route: 058
     Dates: start: 201303, end: 2013
  2. LOSARTAN [Concomitant]
     Dosage: ONE TABLET OF 50 MG, TWICE A DAY
     Route: 048
  3. ATENOLOL [Concomitant]
     Dosage: ONE TABLET OF 25 MG, ONCE A DAY
     Route: 048

REACTIONS (4)
  - Angiopathy [Unknown]
  - Device breakage [Unknown]
  - Joint swelling [Unknown]
  - Arthralgia [Not Recovered/Not Resolved]
